FAERS Safety Report 4892476-0 (Version None)
Quarter: 2006Q1

REPORT INFORMATION
  Report Type: 
  Country: None (occurrence: None)
  Receive Date: 20060126
  Receipt Date: 20051020
  Transmission Date: 20060701
  Serious: No
  Sender: FDA-Public Use
  Company Number: US-BRISTOL-MYERS SQUIBB COMPANY-13151477

PATIENT
  Age: 54 Year
  Sex: Female
  Weight: 82 kg

DRUGS (3)
  1. CEFZIL [Suspect]
     Indication: POSTOPERATIVE CARE
     Route: 048
     Dates: start: 20051017
  2. CEFZIL [Suspect]
     Indication: SINUSITIS
     Route: 048
     Dates: start: 20050201
  3. MULTI-VITAMIN [Concomitant]

REACTIONS (2)
  - ABDOMINAL PAIN [None]
  - VOMITING [None]
